FAERS Safety Report 7822068-2 (Version None)
Quarter: 2011Q4

REPORT INFORMATION
  Report Type: 
  Country: None (occurrence: None)
  Receive Date: 20111018
  Receipt Date: 20111011
  Transmission Date: 20120403
  Serious: Yes (Death)
  Sender: FDA-Public Use
  Company Number: PHHY2011CO78427

PATIENT
  Sex: Male

DRUGS (1)
  1. EXJADE [Suspect]
     Indication: IRON OVERLOAD
     Dosage: 1000 MG, DAILY
     Route: 048
     Dates: start: 20100715

REACTIONS (4)
  - THERAPEUTIC RESPONSE DECREASED [None]
  - DISEASE PROGRESSION [None]
  - APLASTIC ANAEMIA [None]
  - SPLENOMEGALY [None]
